FAERS Safety Report 6441050-3 (Version None)
Quarter: 2009Q4

REPORT INFORMATION
  Report Type: 
  Country: None (occurrence: None)
  Receive Date: 20091116
  Receipt Date: 20091104
  Transmission Date: 20100525
  Serious: Yes (Other)
  Sender: FDA-Public Use
  Company Number: BR-ROCHE-666712

PATIENT
  Sex: Male

DRUGS (1)
  1. RIVOTRIL [Suspect]
     Indication: DRUG USE FOR UNKNOWN INDICATION
     Dosage: TOOK BETWEEN 20 OR 30 TABKETS
     Route: 065
     Dates: start: 20091104, end: 20091104

REACTIONS (3)
  - DYSSTASIA [None]
  - LOSS OF CONSCIOUSNESS [None]
  - OVERDOSE [None]
